FAERS Safety Report 19610825 (Version 2)
Quarter: 2021Q3

REPORT INFORMATION
  Report Type: Spontaneous
  Country: GR (occurrence: GR)
  Receive Date: 20210726
  Receipt Date: 20210810
  Transmission Date: 20211014
  Serious: Yes (Other)
  Sender: FDA-Public Use
  Company Number: GR-SA-2021SA239176

PATIENT
  Age: 84 Year
  Sex: Female

DRUGS (1)
  1. STILNOX [Suspect]
     Active Substance: ZOLPIDEM TARTRATE
     Dosage: UNK

REACTIONS (7)
  - Lower limb fracture [Unknown]
  - Memory impairment [Unknown]
  - Dementia [Unknown]
  - Nervousness [Unknown]
  - Drug dependence [Unknown]
  - Soliloquy [Unknown]
  - Off label use [Unknown]
